FAERS Safety Report 8198857 (Version 3)
Quarter: 2013Q1

REPORT INFORMATION
  Report Type: Spontaneous
  Country: US (occurrence: US)
  Receive Date: 20111025
  Receipt Date: 20130125
  Transmission Date: 20140127
  Serious: Yes (Hospitalization, Other)
  Sender: FDA-Public Use
  Company Number: US-ELI_LILLY_AND_COMPANY-US201110004488

PATIENT
  Age: 54 Year
  Sex: Female
  Weight: 96.15 kg

DRUGS (25)
  1. BYETTA [Suspect]
     Dosage: UNK
  2. VENLAFAXINE [Concomitant]
     Dosage: 75 MG, UNK
  3. SEROQUEL [Concomitant]
     Dosage: 100 MG, UNK
  4. SEROQUEL [Concomitant]
     Dosage: 50 MG, UNK
  5. ALBUTEROL [Concomitant]
     Dosage: 17 G, UNK
  6. PEPCID [Concomitant]
     Dosage: 40 MG, UNK
  7. MORPHINE [Concomitant]
     Dosage: 30 MG, UNK
  8. BENADRYL [Concomitant]
     Dosage: UNK, PRN
  9. COZAAR [Concomitant]
     Dosage: 50 MG, UNK
  10. ADVAIR [Concomitant]
  11. VENLAFAXINE HYDROCHLORIDE [Concomitant]
     Dosage: 75 MG, UNK
  12. VENLAFAXINE HYDROCHLORIDE [Concomitant]
     Dosage: 150 MG, UNK
  13. HYDROXYZINE HCL [Concomitant]
  14. DOXEPIN [Concomitant]
     Dosage: 100 MG, UNK
  15. XANAX [Concomitant]
     Dosage: 0.25 MG, PRN
  16. LORTAB [Concomitant]
     Dosage: UNK, PRN
  17. ACETAMINOPHEN PM [Concomitant]
  18. DIAZEPAM [Concomitant]
     Dosage: 10 MG, UNK
  19. SINGULAIR [Concomitant]
     Dosage: 10 MG, UNK
  20. HYDROCODONE W/APAP [Concomitant]
  21. MORPHINE SULPHATE [Concomitant]
     Dosage: 30 MG, UNK
  22. CEPHALEXIN [Concomitant]
     Dosage: 500 MG, UNK
  23. ACETAMINOPHEN [Concomitant]
     Dosage: 325 MG, UNK
  24. PHENYLEPHRINE HCL [Concomitant]
     Dosage: 5 MG, UNK
  25. OXYGEN [Concomitant]

REACTIONS (6)
  - Pancreatitis [Recovered/Resolved]
  - Pneumonia [Unknown]
  - Pancreatic pseudocyst [Unknown]
  - Hypertension [Unknown]
  - Palpitations [Not Recovered/Not Resolved]
  - Blood cholesterol increased [Not Recovered/Not Resolved]
